FAERS Safety Report 22625227 (Version 7)
Quarter: 2023Q4

REPORT INFORMATION
  Report Type: Spontaneous
  Country: US (occurrence: US)
  Receive Date: 20230621
  Receipt Date: 20231207
  Transmission Date: 20240110
  Serious: Yes (Hospitalization)
  Sender: FDA-Public Use
  Company Number: US-PFIZER INC-PV202300105438

PATIENT
  Age: 52 Year
  Sex: Female

DRUGS (4)
  1. IBRANCE [Suspect]
     Active Substance: PALBOCICLIB
     Dosage: UNK
  2. IBRANCE [Suspect]
     Active Substance: PALBOCICLIB
     Dosage: 100 MG
     Dates: start: 20231130
  3. OZEMPIC [Suspect]
     Active Substance: SEMAGLUTIDE
     Dosage: UNK
  4. OXYCODONE [Concomitant]
     Active Substance: OXYCODONE
     Dosage: UNK

REACTIONS (18)
  - Sepsis [Unknown]
  - Gastrointestinal motility disorder [Unknown]
  - Diarrhoea [Unknown]
  - Mouth ulceration [Unknown]
  - Headache [Not Recovered/Not Resolved]
  - Pain [Unknown]
  - Oesophagitis [Unknown]
  - Oropharyngeal pain [Unknown]
  - Dysphagia [Unknown]
  - Hypotension [Unknown]
  - White blood cell count decreased [Unknown]
  - Pruritus [Unknown]
  - Dyspnoea exertional [Unknown]
  - Palpitations [Unknown]
  - Ear disorder [Unknown]
  - Sinus congestion [Unknown]
  - Epistaxis [Unknown]
  - Hyperhidrosis [Unknown]
